FAERS Safety Report 5503651-6 (Version None)
Quarter: 2007Q4

REPORT INFORMATION
  Report Type: 
  Country: None (occurrence: None)
  Receive Date: 20071101
  Receipt Date: 20071025
  Transmission Date: 20080405
  Serious: Yes (Hospitalization)
  Sender: FDA-Public Use
  Company Number: PHHO2007DE16291

PATIENT
  Age: 56 Year
  Sex: Male
  Weight: 76 kg

DRUGS (3)
  1. AEB071 VS MYFORTIC [Suspect]
     Indication: RENAL TRANSPLANT
     Dosage: 200 MG, BID
     Route: 048
     Dates: start: 20061227
  2. MYFORTIC [Suspect]
     Indication: RENAL TRANSPLANT
     Dosage: 720 MG, BID
     Route: 048
     Dates: start: 20070412, end: 20070924
  3. MYFORTIC [Suspect]
     Dosage: 180 MG, BID
     Route: 048
     Dates: start: 20071001

REACTIONS (7)
  - ABDOMINAL PAIN UPPER [None]
  - ACUTE PRERENAL FAILURE [None]
  - ANURIA [None]
  - DEHYDRATION [None]
  - DIARRHOEA [None]
  - FLUID INTAKE REDUCED [None]
  - HAEMATEMESIS [None]
